FAERS Safety Report 6859661-X (Version None)
Quarter: 2010Q3

REPORT INFORMATION
  Report Type: 
  Country: None (occurrence: None)
  Receive Date: 20100719
  Receipt Date: 20100714
  Transmission Date: 20110219
  Serious: Yes (Hospitalization)
  Sender: FDA-Public Use
  Company Number: IT-BRISTOL-MYERS SQUIBB COMPANY-15137979

PATIENT
  Age: 78 Year
  Sex: Female

DRUGS (4)
  1. COUMADIN [Suspect]
     Indication: ATRIAL FIBRILLATION
     Route: 048
     Dates: start: 20090101, end: 20100421
  2. TENORMIN [Concomitant]
     Dosage: 100MG TABS 1DF=0.25 POSOLOGIC UNIT
     Route: 048
  3. TORVAST [Concomitant]
     Dosage: 1DF=1 POSOLOGIC UNIT 20MG TABS
     Route: 048
  4. LASIX [Concomitant]
     Dosage: 1DF=2 POSOLOGIC UNIT
     Route: 048

REACTIONS (6)
  - ANAEMIA [None]
  - DYSPNOEA [None]
  - HAEMORRHAGE [None]
  - HAEMORRHOIDS [None]
  - IRON DEFICIENCY ANAEMIA [None]
  - RECTAL PROLAPSE [None]
